FAERS Safety Report 6243552-1 (Version None)
Quarter: 2009Q2

REPORT INFORMATION
  Report Type: 
  Country: None (occurrence: None)
  Receive Date: 20090618
  Receipt Date: 20081216
  Transmission Date: 20091009
  Serious: Yes (Other)
  Sender: FDA-Public Use
  Company Number: CIP08002545

PATIENT
  Age: 53 Year
  Sex: Female
  Weight: 40 kg

DRUGS (6)
  1. ACTONEL [Suspect]
     Indication: OSTEOPOROSIS
     Dosage: 35 MG ONCE A WEEK, ORAL
     Route: 048
     Dates: start: 20031101, end: 20070101
  2. TREXALL [Suspect]
     Indication: RHEUMATOID ARTHRITIS
     Dosage: 10 MG PER WEEK, ORAL
     Route: 048
     Dates: start: 20040105
  3. FOLTX (CYANOCOBALAMIN, FOLIC ACID, PYRIDOXINE HYDROCHLORIDE) TABLET [Suspect]
     Indication: RHEUMATOID ARTHRITIS
     Dosage: 1 TABLET DAILY, ORAL
     Route: 048
     Dates: start: 20040105
  4. LEUCOVORIN /00566701/ (FOLINIC ACID) [Suspect]
     Indication: RHEUMATOID ARTHRITIS
     Dosage: 10 MG 12 HOURS AFTER METHOTREXATE, ORAL
     Route: 048
     Dates: start: 20050902
  5. RITUXIMAB (RITUXIMAB) [Suspect]
     Indication: RHEUMATOID ARTHRITIS
     Dosage: 1000 MG EVERY 2K, IV NOS
     Route: 042
     Dates: start: 20071031
  6. PLAQUENIL [Suspect]
     Indication: RHEUMATOID ARTHRITIS
     Dosage: ORAL
     Route: 048

REACTIONS (14)
  - CELLULITIS [None]
  - CONDITION AGGRAVATED [None]
  - EXOSTOSIS [None]
  - FISTULA DISCHARGE [None]
  - GINGIVAL DISORDER [None]
  - GINGIVAL SWELLING [None]
  - IMPAIRED HEALING [None]
  - JAW DISORDER [None]
  - ORAL CAVITY FISTULA [None]
  - OSTEOMYELITIS [None]
  - OSTEONECROSIS [None]
  - PRIMARY SEQUESTRUM [None]
  - TOOTH ABSCESS [None]
  - TOOTH INFECTION [None]
